FAERS Safety Report 6338847-7 (Version None)
Quarter: 2009Q3

REPORT INFORMATION
  Report Type: 
  Country: None (occurrence: None)
  Receive Date: 20090903
  Receipt Date: 20090828
  Transmission Date: 20100115
  Serious: No
  Sender: FDA-Public Use
  Company Number: US-B.I. PHARMACEUTICALS,INC./RIDGEFIELD-2009-BP-10222BP

PATIENT
  Sex: Female

DRUGS (3)
  1. VIRAMUNE [Suspect]
     Dosage: 400 MG
     Route: 048
     Dates: end: 20090101
  2. VIRAMUNE [Suspect]
     Dosage: 200 MG
     Route: 048
     Dates: start: 20090101, end: 20090101
  3. TRUVADA [Suspect]
     Dates: end: 20090101

REACTIONS (1)
  - HEPATIC ENZYME INCREASED [None]
